FAERS Safety Report 11791026 (Version 1)
Quarter: 2015Q4

REPORT INFORMATION
  Report Type: Spontaneous
  Country: US (occurrence: US)
  Receive Date: 20151201
  Receipt Date: 20151201
  Transmission Date: 20160305
  Serious: No
  Sender: FDA-Public Use
  Company Number: US-SA-2015SA040471

PATIENT
  Age: 55 Year
  Sex: Female
  Weight: 60.32 kg

DRUGS (17)
  1. ROPINIROLE. [Concomitant]
     Active Substance: ROPINIROLE
     Indication: RESTLESS LEGS SYNDROME
  2. RENVELA [Suspect]
     Active Substance: SEVELAMER CARBONATE
     Indication: HYPERPHOSPHATAEMIA
     Dosage: 3 TABLETS WITH MELAS/ SNACKS
     Route: 048
  3. RENVELA [Suspect]
     Active Substance: SEVELAMER CARBONATE
     Indication: CHRONIC KIDNEY DISEASE
     Dosage: FOUR 800 MG TABLETS WITH HER MAIN MEAL (ONE TRUE MEAL A DAY), THREE 800 MG TABLETS WITH HER SNACKS
     Route: 048
  4. RENVELA [Suspect]
     Active Substance: SEVELAMER CARBONATE
     Indication: HYPERPHOSPHATAEMIA
     Dosage: TWO RENVELA 800 MG TABLETS PER MEAL
     Route: 048
     Dates: start: 20140101
  5. SENSIPAR [Concomitant]
     Active Substance: CINACALCET HYDROCHLORIDE
  6. VITAMIN B NOS/ASCORBIC ACID [Concomitant]
  7. CLONAZEPAM. [Concomitant]
     Active Substance: CLONAZEPAM
     Indication: SLEEP DISORDER
  8. CLONAZEPAM. [Concomitant]
     Active Substance: CLONAZEPAM
     Indication: RESTLESS LEGS SYNDROME
  9. PRAVASTATIN SODIUM. [Concomitant]
     Active Substance: PRAVASTATIN SODIUM
  10. RENVELA [Suspect]
     Active Substance: SEVELAMER CARBONATE
     Indication: HYPERPHOSPHATAEMIA
     Dosage: FOUR 800 MG TABLETS WITH HER MAIN MEAL (ONE TRUE MEAL A DAY), THREE 800 MG TABLETS WITH HER SNACKS
     Route: 048
  11. TRAVATAN [Concomitant]
     Active Substance: TRAVOPROST
     Indication: OCULAR DISCOMFORT
     Dosage: EACH EYE
     Dates: start: 201508
  12. LIDOCAINE/PRILOCAINE [Concomitant]
     Indication: DIALYSIS
     Dosage: APPLY TO FISTULA
  13. ROPINIROLE. [Concomitant]
     Active Substance: ROPINIROLE
     Indication: SLEEP DISORDER
  14. RENVELA [Suspect]
     Active Substance: SEVELAMER CARBONATE
     Indication: CHRONIC KIDNEY DISEASE
     Dosage: TWO RENVELA 800 MG TABLETS PER MEAL
     Route: 048
     Dates: start: 20140101
  15. RENVELA [Suspect]
     Active Substance: SEVELAMER CARBONATE
     Indication: CHRONIC KIDNEY DISEASE
     Dosage: 3 TABLETS WITH MELAS/ SNACKS
     Route: 048
  16. ZOLPIDEM TARTRATE. [Concomitant]
     Active Substance: ZOLPIDEM TARTRATE
     Indication: SLEEP DISORDER
  17. ZOLPIDEM TARTRATE. [Concomitant]
     Active Substance: ZOLPIDEM TARTRATE
     Indication: RESTLESS LEGS SYNDROME

REACTIONS (6)
  - Flatulence [Unknown]
  - Abdominal distension [Not Recovered/Not Resolved]
  - Diarrhoea [Recovering/Resolving]
  - Hyperphosphataemia [Unknown]
  - Constipation [Unknown]
  - Hyperchlorhydria [Not Recovered/Not Resolved]

NARRATIVE: CASE EVENT DATE: 201409
